FAERS Safety Report 4635873-0 (Version None)
Quarter: 2005Q2

REPORT INFORMATION
  Report Type: 
  Country: None (occurrence: None)
  Receive Date: 20050413
  Receipt Date: 20050330
  Transmission Date: 20051028
  Serious: Yes (Hospitalization)
  Sender: FDA-Public Use
  Company Number: 200503IM000116

PATIENT
  Age: 50 Year
  Sex: Female

DRUGS (2)
  1. INFERGEN (INTERFERON ALFACON-1) [Suspect]
     Indication: HEPATITIS C
     Dosage: 15 UG, SUBCUTANEOUS
     Route: 058
     Dates: start: 20041208, end: 20050101
  2. INFERGEN (INTERFERON ALFACON-1) [Suspect]
     Indication: HEPATITIS C
     Dosage: 15 UG, SUBCUTANEOUS
     Route: 058
     Dates: start: 20050101

REACTIONS (1)
  - ROAD TRAFFIC ACCIDENT [None]
